FAERS Safety Report 18310351 (Version 3)
Quarter: 2021Q1

REPORT INFORMATION
  Report Type: Spontaneous
  Country: JP (occurrence: JP)
  Receive Date: 20200924
  Receipt Date: 20210104
  Transmission Date: 20210419
  Serious: Yes (Hospitalization, Other)
  Sender: FDA-Public Use
  Company Number: JP-JAZZ-2020-JP-012491

PATIENT
  Age: 22 Year
  Sex: Male
  Weight: 57 kg

DRUGS (2)
  1. DEFITELIO [Suspect]
     Active Substance: DEFIBROTIDE SODIUM
     Indication: VENOOCCLUSIVE LIVER DISEASE
     Dosage: 25 MILLIGRAM/KILOGRAM/DAY
     Route: 042
     Dates: start: 20200828, end: 20200910
  2. CARBAZOCHROME SULFONATE NA [Concomitant]
     Indication: HAEMATURIA
     Dosage: UNK
     Dates: start: 20200910

REACTIONS (3)
  - Haematuria [Recovered/Resolved]
  - Off label use [Unknown]
  - Viral haemorrhagic cystitis [Unknown]

NARRATIVE: CASE EVENT DATE: 2020
